FAERS Safety Report 6151675-0 (Version None)
Quarter: 2009Q2

REPORT INFORMATION
  Report Type: 
  Country: None (occurrence: None)
  Receive Date: 20090410
  Receipt Date: 20090401
  Transmission Date: 20091009
  Serious: Yes (Hospitalization)
  Sender: FDA-Public Use
  Company Number: DK-ASTRAZENECA-2009SE01343

PATIENT
  Age: 30 Year
  Sex: Male

DRUGS (1)
  1. SEROQUEL [Suspect]

REACTIONS (2)
  - ILL-DEFINED DISORDER [None]
  - OEDEMA [None]
